FAERS Safety Report 17429874 (Version 3)
Quarter: 2020Q2

REPORT INFORMATION
  Report Type: Spontaneous
  Country: US (occurrence: US)
  Receive Date: 20200218
  Receipt Date: 20200521
  Transmission Date: 20200713
  Serious: No
  Sender: FDA-Public Use
  Company Number: US-PFIZER INC-2019156281

PATIENT
  Age: 51 Year
  Sex: Male
  Weight: 126.1 kg

DRUGS (6)
  1. DILANTIN [Suspect]
     Active Substance: PHENYTOIN
     Dosage: 700 MG, DAILY (TAKES 3 IN THE MORNING AND 4 IN THE EVENING)
  2. DILANTIN [Suspect]
     Active Substance: PHENYTOIN
     Dosage: 800 MG, DAILY (100MG CAPSULE, 3 CAPSULES IN THE MORNING AND 5 AT NIGHT, BY MOUTH)
     Route: 048
     Dates: start: 2016
  3. DILANTIN [Suspect]
     Active Substance: PHENYTOIN
     Indication: CEREBRAL PALSY
     Dosage: 700 MG,DAILY (TAKES 3 IN THE MORNING AND 4 IN THE AFTERNOON)(TAKE 3 CAPSULES IN THE AM AND 4 IN THE
  4. DILANTIN [Suspect]
     Active Substance: PHENYTOIN
     Dosage: 700 MG, DAILY (7 CAPSULES OF DILANTIN A DAY, EVERYDAY)
  5. DEPAKOTE ER [Suspect]
     Active Substance: DIVALPROEX SODIUM
     Dosage: 40000 MG, DAILY(500MG (8 TABLETS DAILY)
  6. DILANTIN [Suspect]
     Active Substance: PHENYTOIN
     Dosage: 700 MG, DAILY (3 IN THE AM AND 4 IN THE PM)

REACTIONS (4)
  - Product use in unapproved indication [Unknown]
  - Prescribed overdose [Unknown]
  - Off label use [Unknown]
  - Drug level below therapeutic [Unknown]

NARRATIVE: CASE EVENT DATE: 2016
